FAERS Safety Report 6023007-X (Version None)
Quarter: 2008Q4

REPORT INFORMATION
  Report Type: 
  Country: None (occurrence: None)
  Receive Date: 20081230
  Receipt Date: 20080214
  Transmission Date: 20090506
  Serious: No
  Sender: FDA-Public Use
  Company Number: US-ABBOTT-08P-163-0438566-00

PATIENT
  Sex: Female
  Weight: 14.074 kg

DRUGS (2)
  1. OMNICEF [Suspect]
     Indication: EAR INFECTION
     Route: 048
     Dates: start: 20080131, end: 20080208
  2. MOMETASONE FUROATE [Concomitant]
     Indication: NASAL CONGESTION
     Route: 045
     Dates: start: 20080212

REACTIONS (4)
  - ABDOMINAL PAIN UPPER [None]
  - ANXIETY [None]
  - FATIGUE [None]
  - RASH [None]
